FAERS Safety Report 9643606 (Version 2)
Quarter: 2013Q4

REPORT INFORMATION
  Report Type: Report from Study
  Country: JP (occurrence: JP)
  Receive Date: 20131024
  Receipt Date: 20131119
  Transmission Date: 20140711
  Serious: Yes (Hospitalization)
  Sender: FDA-Public Use
  Company Number: PHHY2013JP117540

PATIENT
  Age: 41 Year
  Sex: Female

DRUGS (24)
  1. LEPONEX / CLOZARIL [Suspect]
     Indication: SCHIZOPHRENIA, PARANOID TYPE
     Dosage: 12.5 MG, DAILY
     Route: 048
     Dates: start: 20120105, end: 20120105
  2. LEPONEX / CLOZARIL [Suspect]
     Dosage: 25 MG, DAILY
     Route: 048
     Dates: start: 20120106, end: 20120108
  3. LEPONEX / CLOZARIL [Suspect]
     Dosage: 50 MG, DAILY
     Route: 048
     Dates: start: 20120109, end: 20120111
  4. LEPONEX / CLOZARIL [Suspect]
     Dosage: 75 MG, DAILY
     Route: 048
     Dates: start: 20120112, end: 20120114
  5. LEPONEX / CLOZARIL [Suspect]
     Dosage: 100 MG, DAILY
     Route: 048
     Dates: start: 20120115, end: 20120116
  6. LEPONEX / CLOZARIL [Suspect]
     Dosage: 125 MG, DAILY
     Route: 048
     Dates: start: 20120117, end: 20120118
  7. LEPONEX / CLOZARIL [Suspect]
     Dosage: 150 MG, DAILY
     Route: 048
     Dates: start: 20120119, end: 20120121
  8. LEPONEX / CLOZARIL [Suspect]
     Dosage: 175 MG, DAILY
     Route: 048
     Dates: start: 20120122, end: 20120124
  9. LEPONEX / CLOZARIL [Suspect]
     Dosage: 200 MG, DAILY
     Route: 048
     Dates: start: 20120125, end: 20120129
  10. LEPONEX / CLOZARIL [Suspect]
     Dosage: 300 MG, DAILY
     Route: 048
     Dates: start: 20120130, end: 20120131
  11. LEPONEX / CLOZARIL [Suspect]
     Dosage: 200 MG, DAILY
     Route: 048
     Dates: start: 20120202, end: 20120411
  12. LEPONEX / CLOZARIL [Suspect]
     Dosage: UNK
     Route: 048
  13. ZYPREXA [Concomitant]
     Dosage: 20 MG
     Route: 048
     Dates: start: 20120105
  14. ZYPREXA [Concomitant]
     Dosage: 10 MG
     Route: 048
     Dates: end: 20120124
  15. THYRADIN S [Concomitant]
     Indication: HYPOTHYROIDISM
     Dosage: 50 UG
     Route: 048
  16. FLUNITRAZEPAM [Concomitant]
     Indication: SCHIZOPHRENIA, PARANOID TYPE
     Dosage: 2 MG
     Route: 048
  17. LENDEM [Concomitant]
     Indication: SCHIZOPHRENIA, PARANOID TYPE
     Dosage: 0.25 MG
     Route: 048
  18. LIMAS [Concomitant]
     Indication: SCHIZOPHRENIA, PARANOID TYPE
     Dosage: 1000 MG
     Route: 048
  19. LIMAS [Concomitant]
     Dosage: 600 MG
     Route: 048
  20. MAGMITT [Concomitant]
     Indication: SCHIZOPHRENIA, PARANOID TYPE
     Dosage: 1320 MG
     Route: 048
     Dates: start: 20120209
  21. MAGMITT [Concomitant]
     Dosage: 1980 MG
     Route: 048
  22. SULTIMIN [Concomitant]
     Indication: HYPOTHYROIDISM
     Dosage: 5 MG
     Route: 048
     Dates: start: 20120206
  23. LEUCON [Concomitant]
     Indication: PROPHYLAXIS
     Dosage: 60 MG
     Route: 048
     Dates: start: 20120314
  24. LEUCON [Concomitant]
     Dosage: 60 MG
     Route: 048

REACTIONS (9)
  - Enterocolitis infectious [Recovered/Resolved]
  - Vomiting [Unknown]
  - Diarrhoea [Unknown]
  - Body temperature decreased [Recovered/Resolved]
  - Haemoglobin decreased [Not Recovered/Not Resolved]
  - Haematocrit decreased [Not Recovered/Not Resolved]
  - Eosinophil count decreased [Not Recovered/Not Resolved]
  - Neutropenia [Not Recovered/Not Resolved]
  - White blood cell count decreased [Not Recovered/Not Resolved]
